FAERS Safety Report 5795493-1 (Version None)
Quarter: 2008Q2

REPORT INFORMATION
  Report Type: 
  Country: None (occurrence: None)
  Receive Date: 20080601
  Receipt Date: 20080202
  Transmission Date: 20081010
  Serious: No
  Sender: FDA-Public Use
  Company Number: US2008020005111

PATIENT
  Age: 59 Year
  Sex: Male
  Weight: 109.8 kg

DRUGS (16)
  1. BYETTA [Suspect]
     Indication: TYPE 2 DIABETES MELLITUS
     Dosage: 5 UG, 2/D, SUBCUTANEOUS ; 10 UG, 2/D, SUBCUTANEOUS
     Route: 058
     Dates: start: 20060601, end: 20060701
  2. BYETTA [Suspect]
     Indication: TYPE 2 DIABETES MELLITUS
     Dosage: 5 UG, 2/D, SUBCUTANEOUS ; 10 UG, 2/D, SUBCUTANEOUS
     Route: 058
     Dates: start: 20060701
  3. METFORMIN HCL [Concomitant]
  4. CYMBALTA [Concomitant]
  5. ACTOS [Concomitant]
  6. AVANDIA [Concomitant]
  7. BONIVA [Concomitant]
  8. BUPROPION HCL [Concomitant]
  9. DIOVAN (HYDROCHLOROTHIAZIDE, VALSARTAN) [Concomitant]
  10. FOLIC ACID [Concomitant]
  11. KLONOPIN [Concomitant]
  12. LASIX [Concomitant]
  13. PRAVASTATIN [Concomitant]
  14. TRICOR [Concomitant]
  15. ZETIA [Concomitant]
  16. ZYPREXA [Concomitant]

REACTIONS (3)
  - INJECTION SITE BRUISING [None]
  - INJECTION SITE INJURY [None]
  - RETINAL ARTERY EMBOLISM [None]
